FAERS Safety Report 16754369 (Version 3)
Quarter: 2019Q4

REPORT INFORMATION
  Report Type: Spontaneous
  Country: US (occurrence: US)
  Receive Date: 20190829
  Receipt Date: 20191101
  Transmission Date: 20200122
  Serious: Yes (Other)
  Sender: FDA-Public Use
  Company Number: US-PFIZER INC-2019368298

PATIENT
  Age: 52 Year
  Sex: Male

DRUGS (1)
  1. CAMPTOSAR [Suspect]
     Active Substance: IRINOTECAN HYDROCHLORIDE
     Indication: HEPATIC CANCER
     Dosage: 180 MG/M2, (320MG Q2 WEEKS X 12); 180MG/M2 (320 MG), 190.7 ML/HR
     Route: 042

REACTIONS (8)
  - Hyperhidrosis [Unknown]
  - Nausea [Unknown]
  - Abdominal pain [Unknown]
  - Cholinergic syndrome [Unknown]
  - Off label use [Unknown]
  - Diarrhoea [Unknown]
  - Vomiting [Unknown]
  - Product use in unapproved indication [Unknown]
